FAERS Safety Report 9341181 (Version 16)
Quarter: 2015Q1

REPORT INFORMATION
  Report Type: Report from Study
  Country: CA (occurrence: CA)
  Receive Date: 20130611
  Receipt Date: 20150320
  Transmission Date: 20150721
  Serious: Yes (Other)
  Sender: FDA-Public Use
  Company Number: CA-ROCHE-1137956

PATIENT
  Age: 62 Year
  Sex: Male
  Weight: 93 kg

DRUGS (23)
  1. RITUXAN [Suspect]
     Active Substance: RITUXIMAB
     Indication: GRANULOMATOSIS WITH POLYANGIITIS
     Dosage: FIRST RPAP INFUSION
     Route: 042
     Dates: start: 20120723
  2. SOLU-MEDROL [Suspect]
     Active Substance: METHYLPREDNISOLONE SODIUM SUCCINATE
     Route: 042
     Dates: start: 20140616
  3. CELLCEPT [Concomitant]
     Active Substance: MYCOPHENOLATE MOFETIL\MYCOPHENOLATE MOFETIL HYDROCHLORIDE
  4. CRESTOR [Concomitant]
     Active Substance: ROSUVASTATIN CALCIUM
  5. RITUXAN [Suspect]
     Active Substance: RITUXIMAB
     Route: 042
     Dates: start: 20131118
  6. RITUXAN [Suspect]
     Active Substance: RITUXIMAB
     Dosage: BEFORE RPAP
     Route: 042
     Dates: start: 20051019
  7. RITUXAN [Suspect]
     Active Substance: RITUXIMAB
     Route: 042
     Dates: start: 20150224
  8. SOLU-MEDROL [Suspect]
     Active Substance: METHYLPREDNISOLONE SODIUM SUCCINATE
     Indication: PREMEDICATION
     Route: 042
     Dates: start: 20120723
  9. NOVOLIN GE 40/60 [Suspect]
     Active Substance: INSULIN HUMAN
     Indication: HYPERGLYCAEMIA
     Route: 065
  10. INSULIN [Concomitant]
     Active Substance: INSULIN NOS
     Dosage: 15 UNITS
     Route: 065
     Dates: start: 20140707
  11. ACTONEL [Concomitant]
     Active Substance: RISEDRONATE SODIUM
  12. DIPHENHYDRAMINE HCL [Concomitant]
     Active Substance: DIPHENHYDRAMINE HYDROCHLORIDE
     Indication: PREMEDICATION
     Route: 048
     Dates: start: 20120817, end: 20120817
  13. METHYLPREDNISOLONE. [Concomitant]
     Active Substance: METHYLPREDNISOLONE
     Indication: PREMEDICATION
     Route: 042
     Dates: start: 20120817, end: 20120817
  14. PREDNISONE. [Suspect]
     Active Substance: PREDNISONE
     Indication: PRODUCT USED FOR UNKNOWN INDICATION
     Route: 048
     Dates: end: 2013
  15. PROSCAR [Concomitant]
     Active Substance: FINASTERIDE
  16. RITUXAN [Suspect]
     Active Substance: RITUXIMAB
     Route: 042
     Dates: start: 20150302
  17. IMURAN [Concomitant]
     Active Substance: AZATHIOPRINE
  18. TYLENOL [Concomitant]
     Active Substance: ACETAMINOPHEN
     Route: 048
     Dates: start: 20130723
  19. BENADRYL [Concomitant]
     Active Substance: DIPHENHYDRAMINE HYDROCHLORIDE
     Indication: PREMEDICATION
     Route: 048
     Dates: start: 20130723
  20. INSULIN [Concomitant]
     Active Substance: INSULIN NOS
     Dosage: 40 UNITS OF 40/60 INSULIN
     Route: 065
     Dates: start: 20140707
  21. DIPHENHYDRAMINE HCL [Concomitant]
     Active Substance: DIPHENHYDRAMINE HYDROCHLORIDE
     Route: 048
     Dates: start: 20120723
  22. ACETAMINOPHEN. [Concomitant]
     Active Substance: ACETAMINOPHEN
     Indication: PREMEDICATION
     Route: 048
     Dates: start: 20120817, end: 20120817
  23. RITUXAN [Suspect]
     Active Substance: RITUXIMAB
     Dosage: PREVIOUS RITUXAN DOSE WAS ON 05/JUN/2013,?FREQUENCY : WEEKLY X 4.
     Route: 042
     Dates: start: 20130419

REACTIONS (16)
  - Scar [Unknown]
  - Productive cough [Unknown]
  - Hypotension [Unknown]
  - Blood glucose increased [Unknown]
  - Blood glucose increased [Recovered/Resolved]
  - Infusion related reaction [Unknown]
  - Urinary tract infection [Unknown]
  - Blood urine present [Unknown]
  - Blood glucose decreased [Unknown]
  - Acne [Unknown]
  - Blood pressure increased [Unknown]
  - Rhinorrhoea [Recovered/Resolved]
  - Body temperature decreased [Unknown]
  - Somnolence [Unknown]
  - Blood uric acid increased [Unknown]
  - Medication error [Unknown]

NARRATIVE: CASE EVENT DATE: 20120813
